FAERS Safety Report 15407762 (Version 2)
Quarter: 2018Q4

REPORT INFORMATION
  Report Type: Spontaneous
  Country: US (occurrence: US)
  Receive Date: 20180920
  Receipt Date: 20181108
  Transmission Date: 20190204
  Serious: Yes (Hospitalization, Other)
  Sender: FDA-Public Use
  Company Number: US-PROCTER_AND_GAMBLE-GS18091813

PATIENT
  Sex: Female
  Weight: 52.6 kg

DRUGS (2)
  1. SECRET INVISIBLE BERRY FRESH [Suspect]
     Active Substance: ALUMINUM ZIRCONIUM TRICHLOROHYDREX GLY
     Dosage: 2 SWIPES TO EACH UNDERARM 2/DAY
     Route: 061
     Dates: end: 201808
  2. SECRETAPDO+BSPRAY [Suspect]
     Active Substance: ALUMINUM ZIRCONIUM TRICHLOROHYDREX GLY
     Dosage: 2 SWIPES UNDER EACH ARMPIT TWICE A DAY
     Route: 061
     Dates: start: 1981, end: 201808

REACTIONS (1)
  - Breast cancer [Not Recovered/Not Resolved]

NARRATIVE: CASE EVENT DATE: 2014
